FAERS Safety Report 12699402 (Version 1)
Quarter: 2016Q3

REPORT INFORMATION
  Report Type: Report from Study
  Country: JP (occurrence: JP)
  Receive Date: 20160830
  Receipt Date: 20160830
  Transmission Date: 20161109
  Serious: Yes (Hospitalization)
  Sender: FDA-Public Use
  Company Number: JP-ELI_LILLY_AND_COMPANY-JP201608007919

PATIENT
  Sex: Female

DRUGS (1)
  1. FORTEO [Suspect]
     Active Substance: TERIPARATIDE
     Indication: PRODUCT USED FOR UNKNOWN INDICATION
     Dosage: UNK
     Route: 058
     Dates: start: 20160806

REACTIONS (8)
  - Constipation [Unknown]
  - Back pain [Not Recovered/Not Resolved]
  - Dyspnoea [Unknown]
  - Nausea [Unknown]
  - Headache [Unknown]
  - Palpitations [Unknown]
  - Insomnia [Unknown]
  - Eye disorder [Unknown]

NARRATIVE: CASE EVENT DATE: 201608
